FAERS Safety Report 6271557-3 (Version None)
Quarter: 2009Q3

REPORT INFORMATION
  Report Type: 
  Country: None (occurrence: None)
  Receive Date: 20090717
  Receipt Date: 20090706
  Transmission Date: 20100115
  Serious: Yes (Other)
  Sender: FDA-Public Use
  Company Number: US-MYLANLABS-2009S1010110

PATIENT
  Age: 50 Year
  Sex: Female
  Weight: 49.9 kg

DRUGS (9)
  1. FENTANYL TRANSDERMAL SYSTEM [Suspect]
     Indication: CANCER PAIN
     Dosage: CHANGED Q72H
     Route: 062
     Dates: start: 20090101
  2. HYDROMORPHONE HCL [Concomitant]
     Indication: CANCER PAIN
     Route: 048
     Dates: start: 20080101
  3. VALIUM [Concomitant]
     Indication: ANXIETY
     Route: 048
     Dates: start: 20080101
  4. INSULIN [Concomitant]
     Indication: DIABETES MELLITUS
     Route: 058
  5. AMITRIPTYLINE [Concomitant]
  6. DILANTIN [Concomitant]
  7. FLUOXETINE HCL [Concomitant]
  8. LORAZEPAM [Concomitant]
  9. DEXAMETHASONE [Concomitant]

REACTIONS (5)
  - ABDOMINAL PAIN [None]
  - AGITATION [None]
  - DRUG WITHDRAWAL SYNDROME [None]
  - PSYCHOMOTOR HYPERACTIVITY [None]
  - RESTLESSNESS [None]
